FAERS Safety Report 16662489 (Version 1)
Quarter: 2019Q3

REPORT INFORMATION
  Report Type: Report from Study
  Country: US (occurrence: US)
  Receive Date: 20190802
  Receipt Date: 20190802
  Transmission Date: 20191004
  Serious: No
  Sender: FDA-Public Use
  Company Number: US-EXELIXIS-CABO-19018860

PATIENT
  Sex: Male

DRUGS (16)
  1. DEXAMETHASONE. [Concomitant]
     Active Substance: DEXAMETHASONE
  2. TESTOSTERONE. [Concomitant]
     Active Substance: TESTOSTERONE
  3. FLUCONAZOLE. [Concomitant]
     Active Substance: FLUCONAZOLE
  4. LEVOTHYROXINE. [Concomitant]
     Active Substance: LEVOTHYROXINE
  5. NYSTATIN. [Concomitant]
     Active Substance: NYSTATIN
  6. CABOMETYX [Suspect]
     Active Substance: CABOZANTINIB S-MALATE
     Indication: RENAL CANCER
     Dosage: 40 MG, QD
     Route: 048
     Dates: start: 20181130
  7. CLOBETASOL [Concomitant]
     Active Substance: CLOBETASOL
  8. LISINOPRIL. [Concomitant]
     Active Substance: LISINOPRIL
  9. ANDROGEL [Concomitant]
     Active Substance: TESTOSTERONE
  10. VALACYCLOVIR [Concomitant]
     Active Substance: VALACYCLOVIR HYDROCHLORIDE
  11. AZITHROMYCIN ANHYDROUS. [Concomitant]
     Active Substance: AZITHROMYCIN ANHYDROUS
  12. NYSTOP [Concomitant]
     Active Substance: NYSTATIN
  13. PREDNISONE. [Concomitant]
     Active Substance: PREDNISONE
  14. CEPHALEXIN. [Concomitant]
     Active Substance: CEPHALEXIN
  15. WARFARIN [Concomitant]
     Active Substance: WARFARIN
  16. PANTOPRAZOLE [Concomitant]
     Active Substance: PANTOPRAZOLE

REACTIONS (1)
  - Skin ulcer [Not Recovered/Not Resolved]

NARRATIVE: CASE EVENT DATE: 2018
